FAERS Safety Report 5607652-9 (Version None)
Quarter: 2008Q1

REPORT INFORMATION
  Report Type: 
  Country: None (occurrence: None)
  Receive Date: 20080128
  Receipt Date: 20080128
  Transmission Date: 20080703
  Serious: Yes (Other)
  Sender: FDA-Public Use
  Company Number: None

PATIENT
  Sex: Male
  Weight: 66 kg

DRUGS (2)
  1. AMPHOTERICIN B [Suspect]
     Indication: MENINGITIS CRYPTOCOCCAL
     Dosage: 65 MG DAILY IV
     Route: 042
     Dates: start: 20080107, end: 20080110
  2. ABELCET [Suspect]
     Dosage: 350 MG DAILY-Q OTHER DAY IV
     Route: 042
     Dates: start: 20080111, end: 20080119

REACTIONS (2)
  - BLOOD CREATININE INCREASED [None]
  - CREATININE RENAL CLEARANCE DECREASED [None]
